FAERS Safety Report 17823488 (Version 1)
Quarter: 2020Q2

REPORT INFORMATION
  Report Type: Spontaneous
  Country: US (occurrence: US)
  Receive Date: 20200525
  Receipt Date: 20200525
  Transmission Date: 20200714
  Serious: Yes (Other)
  Sender: FDA-Public Use
  Company Number: None

PATIENT
  Age: 55 Year
  Sex: Male
  Weight: 78.75 kg

DRUGS (2)
  1. OMEPRAZOLE. [Concomitant]
     Active Substance: OMEPRAZOLE
  2. KRATOM 3 OZ. [Suspect]
     Active Substance: HERBALS\MITRAGYNINE
     Route: 048
     Dates: start: 20200517, end: 20200525

REACTIONS (5)
  - Poisoning [None]
  - Product contamination physical [None]
  - Product contamination [None]
  - Visual impairment [None]
  - Chest pain [None]

NARRATIVE: CASE EVENT DATE: 20200525
